FAERS Safety Report 8278805-9 (Version None)
Quarter: 2012Q2

REPORT INFORMATION
  Report Type: 
  Country: None (occurrence: None)
  Receive Date: 20120412
  Receipt Date: 20110705
  Transmission Date: 20120825
  Serious: No
  Sender: FDA-Public Use
  Company Number: US-ASTRAZENECA-2011SE40083

PATIENT
  Age: 83 Year
  Sex: Female

DRUGS (4)
  1. DEMEROL [Concomitant]
  2. PLAVIX [Suspect]
     Indication: STENT PLACEMENT
     Route: 048
     Dates: start: 20110501
  3. NEXIUM [Suspect]
     Route: 048
  4. MAGNESIUM [Concomitant]

REACTIONS (2)
  - CONTUSION [None]
  - RASH MACULAR [None]
